FAERS Safety Report 25008410 (Version 1)
Quarter: 2025Q1

REPORT INFORMATION
  Report Type: Spontaneous
  Country: US (occurrence: None)
  Receive Date: 20250224
  Receipt Date: 20250224
  Transmission Date: 20250409
  Serious: Yes (Death)
  Sender: FDA-CTU
  Company Number: None

PATIENT
  Age: 63 Year

DRUGS (12)
  1. PIRFENIDONE [Suspect]
     Active Substance: PIRFENIDONE
     Indication: Idiopathic pulmonary fibrosis
     Dosage: FREQUENCY : DAILY;?
     Route: 048
     Dates: start: 20220927, end: 20241012
  2. PREDNISONE [Concomitant]
     Active Substance: PREDNISONE
  3. HALDOL [Concomitant]
     Active Substance: HALOPERIDOL
  4. PANTOPRAZOLE [Concomitant]
     Active Substance: PANTOPRAZOLE
  5. ALBUTEROL [Concomitant]
     Active Substance: ALBUTEROL
  6. MUCINEX [Concomitant]
     Active Substance: GUAIFENESIN
  7. atrovent inl soln [Concomitant]
  8. MELATONIN [Concomitant]
     Active Substance: MELATONIN
  9. benonatate [Concomitant]
  10. breyna hfa [Concomitant]
  11. ALBUTEROL SULFATE [Concomitant]
     Active Substance: ALBUTEROL SULFATE
  12. FLONASE [Concomitant]
     Active Substance: FLUTICASONE PROPIONATE

REACTIONS (1)
  - Death [None]

NARRATIVE: CASE EVENT DATE: 20241012
